FAERS Safety Report 8886151 (Version 1)
Quarter: 2012Q4

REPORT INFORMATION
  Report Type: 
  Country: CA (occurrence: CA)
  Receive Date: 20121105
  Receipt Date: 20121105
  Transmission Date: 20130627
  Serious: Yes (Death)
  Sender: FDA-Public Use
  Company Number: CA-CUBIST-2012S1000899

PATIENT

DRUGS (3)
  1. CUBICIN [Suspect]
     Indication: STAPHYLOCOCCAL INFECTION
  2. CUBICIN [Suspect]
     Indication: ENDOCARDITIS
  3. VANCOMYCIN [Concomitant]
     Indication: STAPHYLOCOCCAL INFECTION

REACTIONS (2)
  - Death [Fatal]
  - Infection [Unknown]
